FAERS Safety Report 6356051-3 (Version None)
Quarter: 2009Q3

REPORT INFORMATION
  Report Type: 
  Country: None (occurrence: None)
  Receive Date: 20090914
  Receipt Date: 20090914
  Transmission Date: 20100115
  Serious: No
  Sender: FDA-Public Use
  Company Number: None

PATIENT
  Age: 49 Year
  Sex: Female
  Weight: 68.0396 kg

DRUGS (1)
  1. BAYER QUICK RELEASE CRYSTALS 825MG BAYER [Suspect]
     Indication: HEADACHE
     Dosage: 825MG EVERY 6 HR
     Dates: start: 20090910, end: 20090910

REACTIONS (2)
  - NAUSEA [None]
  - WRONG TECHNIQUE IN DRUG USAGE PROCESS [None]
